FAERS Safety Report 7304015-5 (Version None)
Quarter: 2011Q1

REPORT INFORMATION
  Report Type: 
  Country: None (occurrence: None)
  Receive Date: 20110221
  Receipt Date: 20110214
  Transmission Date: 20110831
  Serious: Yes (Life-Threatening)
  Sender: FDA-Public Use
  Company Number: AU-MERCK-1102USA01554

PATIENT
  Sex: Male
  Weight: 60 kg

DRUGS (4)
  1. ZOCOR [Suspect]
     Route: 048
  2. SUNITINIB MALATE [Suspect]
     Route: 048
     Dates: start: 20101130, end: 20101214
  3. CLOPIDOGREL [Suspect]
     Route: 065
  4. AVAPRO [Suspect]
     Route: 065

REACTIONS (4)
  - BIFASCICULAR BLOCK [None]
  - ELECTROCARDIOGRAM QT PROLONGED [None]
  - PRESYNCOPE [None]
  - CIRCULATORY COLLAPSE [None]
